FAERS Safety Report 21405671 (Version 1)
Quarter: 2022Q4

REPORT INFORMATION
  Report Type: Other
  Country: DE (occurrence: None)
  Receive Date: 20221004
  Receipt Date: 20221004
  Transmission Date: 20230113
  Serious: Yes (Other)
  Sender: FDA-Public Use
  Company Number: DE-ROCHE-3189593

PATIENT

DRUGS (1)
  1. TOCILIZUMAB [Suspect]
     Active Substance: TOCILIZUMAB
     Indication: Familial mediterranean fever
     Dosage: A MAXIMUM OF 800 MG
     Route: 042

REACTIONS (1)
  - Haemorrhoidal haemorrhage [Unknown]
